FAERS Safety Report 5143189-1 (Version None)
Quarter: 2006Q4

REPORT INFORMATION
  Report Type: 
  Country: None (occurrence: None)
  Receive Date: 20061031
  Receipt Date: 20061031
  Transmission Date: 20070319
  Serious: Yes (Hospitalization)
  Sender: FDA-Public Use
  Company Number: None

PATIENT
  Age: 64 Year
  Sex: Male
  Weight: 93.8946 kg

DRUGS (11)
  1. ERLOTINIB, GENENTECH [Suspect]
     Indication: METASTATIC RENAL CELL CARCINOMA
     Dosage: 100MG, QD, PO
     Route: 048
     Dates: start: 20060724
  2. RAPAMUNE [Suspect]
     Indication: METASTATIC RENAL CELL CARCINOMA
     Dosage: 1MG QOD, 2MG QOD, PO
     Route: 048
     Dates: start: 20060731
  3. VITAMIN B6 [Concomitant]
  4. PRILOSEC [Concomitant]
  5. ACETAZOLAMIDE [Concomitant]
  6. UROCIT K10 [Concomitant]
  7. FOLIC ACID/B12 [Concomitant]
  8. ZANTAC [Concomitant]
  9. DOXYCYCLINE [Concomitant]
  10. TUCKS SUPPOSITORIES [Concomitant]
  11. BIOTENE MOUTHWASH [Concomitant]

REACTIONS (5)
  - ANAEMIA [None]
  - CANCER PAIN [None]
  - CHEST PAIN [None]
  - GASTROOESOPHAGEAL REFLUX DISEASE [None]
  - MUSCULOSKELETAL PAIN [None]
